FAERS Safety Report 16309374 (Version 1)
Quarter: 2019Q2

REPORT INFORMATION
  Report Type: Spontaneous
  Country: US (occurrence: US)
  Receive Date: 20190514
  Receipt Date: 20190514
  Transmission Date: 20190711
  Serious: No
  Sender: FDA-Public Use
  Company Number: US-VIFOR (INTERNATIONAL) INC.-VIT-2019-04324

PATIENT
  Sex: Female

DRUGS (6)
  1. EPOGEN [Concomitant]
     Active Substance: ERYTHROPOIETIN
  2. XELJANZ [Concomitant]
     Active Substance: TOFACITINIB CITRATE
  3. ZITHROMAX [Concomitant]
     Active Substance: AZITHROMYCIN DIHYDRATE
  4. DRISDOL [Concomitant]
     Active Substance: ERGOCALCIFEROL
  5. ROCALTROL [Concomitant]
     Active Substance: CALCITRIOL
  6. VELTASSA [Suspect]
     Active Substance: PATIROMER
     Indication: HYPERKALAEMIA
     Route: 048
     Dates: start: 20190409

REACTIONS (1)
  - Bronchitis [Unknown]

NARRATIVE: CASE EVENT DATE: 2019
